FAERS Safety Report 16528844 (Version 2)
Quarter: 2019Q3

REPORT INFORMATION
  Report Type: Spontaneous
  Country: US (occurrence: US)
  Receive Date: 20190703
  Receipt Date: 20190927
  Transmission Date: 20191004
  Serious: Yes (Hospitalization)
  Sender: FDA-Public Use
  Company Number: US-VIFOR (INTERNATIONAL) INC.-VIT-2019-06559

PATIENT
  Age: 82 Year
  Sex: Male

DRUGS (1)
  1. VELTASSA [Suspect]
     Active Substance: PATIROMER
     Indication: HYPERKALAEMIA
     Route: 048
     Dates: start: 20180222, end: 2019

REACTIONS (4)
  - Cerebrovascular accident [Unknown]
  - Hypokalaemia [Unknown]
  - Hospitalisation [Unknown]
  - Cardiac operation [Unknown]

NARRATIVE: CASE EVENT DATE: 201905
